FAERS Safety Report 5589039-0 (Version None)
Quarter: 2007Q4

REPORT INFORMATION
  Report Type: 
  Country: None (occurrence: None)
  Receive Date: 20071212
  Receipt Date: 20070607
  Transmission Date: 20080405
  Serious: Yes (Other)
  Sender: FDA-Public Use
  Company Number: USA-2007-0027813

PATIENT
  Age: 51 Year
  Sex: Female

DRUGS (2)
  1. OXYCONTIN [Suspect]
     Indication: BONE PAIN
     Dosage: 80 MG, TID
  2. OXYGEN [Concomitant]

REACTIONS (1)
  - DRUG DEPENDENCE [None]
